FAERS Safety Report 12426569 (Version 2)
Quarter: 2016Q2

REPORT INFORMATION
  Report Type: Spontaneous
  Country: US (occurrence: US)
  Receive Date: 20160601
  Receipt Date: 20160627
  Transmission Date: 20160815
  Serious: Yes (Death, Hospitalization)
  Sender: FDA-Public Use
  Company Number: US-ABBVIE-16P-163-1639434-00

PATIENT
  Age: 20 Year
  Sex: Female

DRUGS (1)
  1. CREON [Suspect]
     Active Substance: PANCRELIPASE AMYLASE\PANCRELIPASE LIPASE\PANCRELIPASE PROTEASE
     Indication: CYSTIC FIBROSIS
     Dosage: 2 WITH MEALS 3 WITH SNACKS
     Route: 065
     Dates: start: 1995, end: 201503

REACTIONS (5)
  - Pyrexia [Fatal]
  - Organ failure [Fatal]
  - Sepsis [Fatal]
  - Respiratory failure [Fatal]
  - Respiratory failure [Recovered/Resolved]

NARRATIVE: CASE EVENT DATE: 201404
